FAERS Safety Report 5963751-3 (Version None)
Quarter: 2008Q4

REPORT INFORMATION
  Report Type: 
  Country: None (occurrence: None)
  Receive Date: 20081121
  Receipt Date: 20081121
  Transmission Date: 20090506
  Serious: Yes (Other)
  Sender: FDA-Public Use
  Company Number: None

PATIENT
  Age: 55 Year
  Sex: Female
  Weight: 81.6475 kg

DRUGS (1)
  1. LYRICA [Suspect]
     Indication: FIBROMYALGIA
     Dosage: 50MG 2/DAY PO
     Route: 048
     Dates: start: 20080701, end: 20080713

REACTIONS (3)
  - DIZZINESS [None]
  - HALLUCINATION [None]
  - INCOHERENT [None]
